FAERS Safety Report 10900412 (Version 1)
Quarter: 2015Q1

REPORT INFORMATION
  Report Type: Spontaneous
  Country: US (occurrence: None)
  Receive Date: 20150303
  Receipt Date: 20150303
  Transmission Date: 20150721
  Serious: Yes (Death, Life-Threatening, Hospitalization, Other)
  Sender: FDA-Public Use
  Company Number: None

PATIENT
  Age: 69 Year
  Sex: Male
  Weight: 80 kg

DRUGS (3)
  1. IMBRUVICA [Suspect]
     Active Substance: IBRUTINIB
     Indication: CHRONIC LYMPHOCYTIC LEUKAEMIA
     Dosage: 3 PILLS QD
     Route: 048
     Dates: start: 20141105, end: 20141205
  2. FLONASE [Concomitant]
     Active Substance: FLUTICASONE PROPIONATE
  3. K-TAB [Concomitant]
     Active Substance: POTASSIUM CHLORIDE

REACTIONS (12)
  - Hypoxia [None]
  - Hyponatraemia [None]
  - Ascites [None]
  - Condition aggravated [None]
  - Hepatic failure [None]
  - Hypotension [None]
  - Peritonitis [None]
  - Hyperkalaemia [None]
  - Atrial fibrillation [None]
  - Pneumonia aspiration [None]
  - Intestinal dilatation [None]
  - Renal failure [None]

NARRATIVE: CASE EVENT DATE: 20141203
